FAERS Safety Report 8676234 (Version 9)
Quarter: 2014Q2

REPORT INFORMATION
  Report Type: Spontaneous
  Country: GB (occurrence: GB)
  Receive Date: 20120720
  Receipt Date: 20140616
  Transmission Date: 20141212
  Serious: Yes (Other)
  Sender: FDA-Public Use
  Company Number: GB-MSD-1007GBR00039B1

PATIENT
  Age: 1 Day
  Sex: Male
  Weight: 3.1 kg

DRUGS (6)
  1. ISENTRESS [Suspect]
     Indication: HIV INFECTION
     Dosage: 400 MG, BID
     Route: 064
     Dates: start: 20100610, end: 20100629
  2. NEVIRAPINE [Suspect]
     Dosage: 400 MG, 1/1 DAYS
     Route: 064
     Dates: start: 20090101, end: 20100610
  3. ZIDOVUDINE [Suspect]
     Dosage: 600 MG, UNK
     Route: 064
     Dates: start: 20090101, end: 20100610
  4. VIREAD [Suspect]
     Dosage: 300 MG, 1/1 DAYS
     Route: 064
     Dates: start: 20100610, end: 20100629
  5. LAMIVUDINE [Suspect]
     Dosage: 300 MG,1/1 DAYS
     Route: 064
     Dates: start: 20090101, end: 20100610
  6. KALETRA [Suspect]
     Dosage: UNK
     Route: 064
     Dates: start: 20100610, end: 20100629

REACTIONS (2)
  - Volvulus [Unknown]
  - Foetal exposure during pregnancy [Recovered/Resolved]
